FAERS Safety Report 16351163 (Version 2)
Quarter: 2019Q3

REPORT INFORMATION
  Report Type: Spontaneous
  Country: JP (occurrence: JP)
  Receive Date: 20190524
  Receipt Date: 20190906
  Transmission Date: 20191004
  Serious: Yes (Life-Threatening, Hospitalization)
  Sender: FDA-Public Use
  Company Number: JP-REGENERON PHARMACEUTICALS, INC.-2019-32622

PATIENT

DRUGS (2)
  1. EYLEA [Suspect]
     Active Substance: AFLIBERCEPT
     Dosage: DAILY DOSE 2 MG
     Route: 031
     Dates: start: 20181011, end: 20181011
  2. EYLEA [Suspect]
     Active Substance: AFLIBERCEPT
     Indication: RETINAL VEIN OCCLUSION
     Dosage: DAILY DOSE 2 MG
     Route: 031
     Dates: start: 20180823, end: 20180823

REACTIONS (5)
  - Fall [Unknown]
  - Mobility decreased [Recovered/Resolved with Sequelae]
  - Traumatic intracranial haemorrhage [Recovered/Resolved with Sequelae]
  - Dysarthria [Recovered/Resolved with Sequelae]
  - Ataxia [Unknown]

NARRATIVE: CASE EVENT DATE: 20181130
